FAERS Safety Report 21371724 (Version 1)
Quarter: 2022Q3

REPORT INFORMATION
  Report Type: Spontaneous
  Country: HR (occurrence: HR)
  Receive Date: 20220923
  Receipt Date: 20220923
  Transmission Date: 20221027
  Serious: Yes (Other)
  Sender: FDA-Public Use
  Company Number: HR-NOVARTISPH-NVSC2022HR214985

PATIENT
  Sex: Male

DRUGS (1)
  1. KESIMPTA [Suspect]
     Active Substance: OFATUMUMAB
     Indication: Relapsing multiple sclerosis
     Dosage: 20 MG, 4TH DOSE
     Route: 058

REACTIONS (4)
  - Optic neuritis [Unknown]
  - Condition aggravated [Unknown]
  - Muscular weakness [Unknown]
  - COVID-19 [Unknown]
